FAERS Safety Report 10040247 (Version 2)
Quarter: 2014Q2

REPORT INFORMATION
  Report Type: Spontaneous
  Country: GB (occurrence: GB)
  Receive Date: 20140327
  Receipt Date: 20140506
  Transmission Date: 20141212
  Serious: Yes (Other)
  Sender: FDA-Public Use
  Company Number: GB-ROCHE-1370393

PATIENT
  Age: 75 Year
  Sex: Male

DRUGS (6)
  1. ZELBORAF [Suspect]
     Indication: METASTATIC MALIGNANT MELANOMA
     Dosage: 4 BD
     Route: 048
     Dates: end: 20140320
  2. TRIMETHOPRIM [Suspect]
     Indication: URINARY TRACT INFECTION
     Dosage: 2 TAB
     Route: 048
     Dates: start: 20140311, end: 20140320
  3. METOCLOPRAMIDE [Suspect]
     Indication: PROPHYLAXIS
     Dosage: 2 TAB
     Route: 048
     Dates: end: 20140320
  4. MORPHINE [Concomitant]
     Indication: PAIN
     Route: 048
  5. PARACETAMOL [Concomitant]
     Indication: PAIN
     Route: 048
  6. LACTULOSE [Concomitant]
     Indication: CONSTIPATION
     Route: 048

REACTIONS (2)
  - White blood cell count decreased [Unknown]
  - Neutropenia [Recovered/Resolved]
